FAERS Safety Report 6121348-9 (Version None)
Quarter: 2009Q1

REPORT INFORMATION
  Report Type: 
  Country: None (occurrence: None)
  Receive Date: 20090313
  Receipt Date: 20090313
  Transmission Date: 20090719
  Serious: Yes (Other)
  Sender: FDA-Public Use
  Company Number: None

PATIENT
  Age: 10 Month
  Sex: Female
  Weight: 8.7 kg

DRUGS (2)
  1. METOCLOPRAMIDE HCL [Suspect]
     Indication: VOMITING
     Dosage: .75 MG. QID PO
     Route: 048
     Dates: start: 20081231, end: 20090107
  2. METOCLOPRAMIDE HCL [Suspect]
     Indication: GASTRIC HYPOMOTILITY
     Dosage: .8 MG QID PO
     Route: 048
     Dates: start: 20090130, end: 20090311

REACTIONS (2)
  - MOVEMENT DISORDER [None]
  - PROTRUSION TONGUE [None]
